FAERS Safety Report 14250914 (Version 1)
Quarter: 2017Q4

REPORT INFORMATION
  Report Type: Spontaneous
  Country: US (occurrence: None)
  Receive Date: 20171205
  Receipt Date: 20171205
  Transmission Date: 20180321
  Serious: No
  Sender: FDA-Public Use
  Company Number: None

PATIENT
  Age: 84 Year

DRUGS (3)
  1. LEVOFLOXACIN. [Suspect]
     Active Substance: LEVOFLOXACIN
  2. CIPROFLOXACIN. [Suspect]
     Active Substance: CIPROFLOXACIN
  3. GENTAMICIN. [Suspect]
     Active Substance: GENTAMICIN

REACTIONS (17)
  - Neuropathy peripheral [None]
  - Insomnia [None]
  - Asthenia [None]
  - Visual acuity reduced [None]
  - Rhabdomyolysis [None]
  - Pain [None]
  - Musculoskeletal stiffness [None]
  - Compartment syndrome [None]
  - Ejaculation disorder [None]
  - Functional gastrointestinal disorder [None]
  - Micturition disorder [None]
  - Balance disorder [None]
  - Hypoaesthesia [None]
  - Memory impairment [None]
  - Therapy non-responder [None]
  - Pruritus [None]
  - Hypoacusis [None]
